FAERS Safety Report 8189648-9 (Version None)
Quarter: 2012Q1

REPORT INFORMATION
  Report Type: 
  Country: None (occurrence: None)
  Receive Date: 20120307
  Receipt Date: 20120228
  Transmission Date: 20120608
  Serious: Yes (Other)
  Sender: FDA-Public Use
  Company Number: BR-SANOFI-AVENTIS-2012SA013520

PATIENT
  Age: 68 Year
  Sex: Male
  Weight: 74 kg

DRUGS (10)
  1. FOLIC ACID [Concomitant]
     Indication: BLOOD URIC ACID
     Route: 048
  2. LANTUS [Suspect]
     Indication: TYPE 2 DIABETES MELLITUS
     Dosage: FREQ: 16 IU DAILY/ AT NIGHT
     Route: 065
     Dates: start: 20070101
  3. RAPAMUNE [Suspect]
     Indication: IMMUNOSUPPRESSION
     Route: 048
  4. DILTIAZEM HCL [Suspect]
     Indication: IMMUNOSUPPRESSION
     Route: 048
  5. MYFORTIC [Suspect]
     Indication: IMMUNOSUPPRESSION
     Route: 048
  6. CALCIFEROL [Concomitant]
     Route: 048
  7. ATENOLOL [Concomitant]
     Indication: BLOOD PRESSURE
     Route: 048
  8. AUTOPEN 24 [Suspect]
     Indication: DEVICE THERAPY
     Dates: start: 20070101
  9. OMEPRAZOLE [Concomitant]
     Route: 048
  10. MICARDIS [Concomitant]
     Indication: BLOOD PRESSURE
     Route: 048

REACTIONS (4)
  - ENDOCARDITIS [None]
  - RENAL IMPAIRMENT [None]
  - HYPOGLYCAEMIA [None]
  - BLOOD CREATININE INCREASED [None]
